FAERS Safety Report 6531990-9 (Version None)
Quarter: 2010Q1

REPORT INFORMATION
  Report Type: 
  Country: None (occurrence: None)
  Receive Date: 20100107
  Receipt Date: 20100107
  Transmission Date: 20100710
  Serious: Yes (Hospitalization)
  Sender: FDA-Public Use
  Company Number: None

PATIENT
  Age: 1 Year
  Sex: Female
  Weight: 10 kg

DRUGS (1)
  1. PRED FORTE TOPICAL [Suspect]
     Dosage: TOP
     Route: 061
     Dates: start: 20081125, end: 20091129

REACTIONS (3)
  - CARBUNCLE [None]
  - INFECTION [None]
  - PANCYTOPENIA [None]
